FAERS Safety Report 6160917-7 (Version None)
Quarter: 2009Q2

REPORT INFORMATION
  Report Type: 
  Country: None (occurrence: None)
  Receive Date: 20090420
  Receipt Date: 20090331
  Transmission Date: 20091009
  Serious: Yes (Other)
  Sender: FDA-Public Use
  Company Number: PHHY2009DE14483

PATIENT
  Sex: Male

DRUGS (3)
  1. VOLTAREN RETARD [Suspect]
     Dosage: 2 DF
  2. XARELTO [Suspect]
     Indication: JOINT PROSTHESIS USER
     Dosage: 10 MG
     Route: 048
     Dates: start: 20090211, end: 20090306
  3. FELODIPINE [Concomitant]
     Dosage: 5 MG, UNK

REACTIONS (2)
  - DRUG INTERACTION [None]
  - HAEMORRHAGE [None]
